FAERS Safety Report 10419364 (Version 1)
Quarter: 2014Q2

REPORT INFORMATION
  Report Type: Spontaneous
  Country: US (occurrence: None)
  Receive Date: 20140627
  Receipt Date: 20140627
  Transmission Date: 20141212
  Serious: Yes (Other)
  Sender: FDA-Public Use
  Company Number: PHEH2013US017987

PATIENT
  Age: 57 Year
  Sex: Female

DRUGS (5)
  1. DIOVAN HCT [Suspect]
     Dosage: VALS
  2. HYDROCHLOROTHIAZIDE, VALSARTAN (VALSARTAN HYDROCHLORIDE) [Suspect]
     Dosage: 1 DF (80 MG VALS
  3. DICLOFENAC (DICLOFENAC) [Concomitant]
  4. SULFASALAZINE (SULFASALAZINE) [Concomitant]
  5. ZYRTEC (CETIRIZINE HYDROCHLORIDE) [Concomitant]

REACTIONS (1)
  - Blood pressure increased [None]
